FAERS Safety Report 12669539 (Version 2)
Quarter: 2016Q3

REPORT INFORMATION
  Report Type: Spontaneous
  Country: DE (occurrence: DE)
  Receive Date: 20160819
  Receipt Date: 20160829
  Transmission Date: 20161109
  Serious: Yes (Other)
  Sender: FDA-Public Use
  Company Number: DE-SA-2016SA152371

PATIENT
  Age: 55 Year
  Sex: Female
  Weight: 75 kg

DRUGS (2)
  1. ALIROCUMAB PREFILLED PEN [Concomitant]
     Active Substance: ALIROCUMAB
     Dates: start: 201601, end: 201607
  2. PRALUENT [Suspect]
     Active Substance: ALIROCUMAB
     Indication: BLOOD CHOLESTEROL INCREASED
     Route: 058
     Dates: start: 201601, end: 201607

REACTIONS (3)
  - Hepatic enzyme increased [Unknown]
  - Low density lipoprotein increased [Unknown]
  - Pancreatitis [Recovered/Resolved]

NARRATIVE: CASE EVENT DATE: 201606
